FAERS Safety Report 8905507 (Version 2)
Quarter: 2012Q4

REPORT INFORMATION
  Report Type: 
  Country: JP (occurrence: JP)
  Receive Date: 20121113
  Receipt Date: 20121204
  Transmission Date: 20130627
  Serious: Yes (Hospitalization)
  Sender: FDA-Public Use
  Company Number: JP-EISAI INC-E2020-11585-SPO-JP

PATIENT
  Sex: Female

DRUGS (3)
  1. ARICEPT [Suspect]
     Indication: DRUG USE FOR UNKNOWN INDICATION
     Dosage: unknown
     Route: 048
     Dates: end: 20121101
  2. ARICEPT [Suspect]
     Route: 048
     Dates: start: 20121102, end: 20121102
  3. ARICEPT [Suspect]
     Route: 048
     Dates: start: 201211

REACTIONS (4)
  - Respiratory depression [Recovered/Resolved]
  - Hypotension [Recovered/Resolved]
  - Bradycardia [Recovered/Resolved]
  - Overdose [Recovered/Resolved]
